FAERS Safety Report 5239651-3 (Version None)
Quarter: 2007Q1

REPORT INFORMATION
  Report Type: 
  Country: None (occurrence: None)
  Receive Date: 20070216
  Receipt Date: 20070212
  Transmission Date: 20070707
  Serious: Yes (Death, Other)
  Sender: FDA-Public Use
  Company Number: GB-BRISTOL-MYERS SQUIBB COMPANY-13676697

PATIENT
  Sex: Female

DRUGS (1)
  1. ABILIFY [Suspect]
     Dates: start: 20060920

REACTIONS (1)
  - HOMICIDE [None]
